FAERS Safety Report 6027354-7 (Version None)
Quarter: 2009Q1

REPORT INFORMATION
  Report Type: 
  Country: None (occurrence: None)
  Receive Date: 20090105
  Receipt Date: 20081229
  Transmission Date: 20090719
  Serious: Yes (Other)
  Sender: FDA-Public Use
  Company Number: B0551901A

PATIENT
  Age: 69 Year
  Sex: Female

DRUGS (6)
  1. ZOVIRAX [Suspect]
     Indication: HERPES ZOSTER
     Dosage: 200MG THREE TIMES PER DAY
     Route: 048
     Dates: start: 20081215, end: 20081219
  2. ARASENA-A [Concomitant]
     Route: 061
  3. GASTER [Concomitant]
     Route: 065
  4. URSO 250 [Concomitant]
     Route: 048
  5. MUCOSTA [Concomitant]
     Route: 048
  6. EUGLUCON [Concomitant]

REACTIONS (1)
  - ANAL HAEMORRHAGE [None]
